FAERS Safety Report 8771487 (Version 1)
Quarter: 2012Q4

REPORT INFORMATION
  Report Type: 
  Country: NL (occurrence: NL)
  Receive Date: 20120905
  Receipt Date: 20120905
  Transmission Date: 20130627
  Serious: Yes (Other)
  Sender: FDA-Public Use
  Company Number: PHHY2010NL094755

PATIENT
  Sex: Female

DRUGS (2)
  1. BISOLBRUIS [Suspect]
  2. PARACETAMOL [Suspect]

REACTIONS (1)
  - Blood alkaline phosphatase increased [Unknown]
